FAERS Safety Report 6896303-1 (Version None)
Quarter: 2010Q3

REPORT INFORMATION
  Report Type: 
  Country: None (occurrence: None)
  Receive Date: 20100802
  Receipt Date: 20100729
  Transmission Date: 20110219
  Serious: Yes (Hospitalization)
  Sender: FDA-Public Use
  Company Number: Z0000597A

PATIENT
  Age: 69 Year
  Sex: Female
  Weight: 68.2 kg

DRUGS (3)
  1. LAPATINIB [Suspect]
     Dosage: 1250MG PER DAY
     Route: 048
     Dates: start: 20081106
  2. PACLITAXEL [Suspect]
     Dosage: 125MGM2 CYCLIC
     Route: 042
     Dates: start: 20081013
  3. ZOFRAN [Concomitant]
     Indication: NAUSEA
     Dosage: 8MG AS REQUIRED
     Route: 048
     Dates: start: 20081110

REACTIONS (1)
  - DEHYDRATION [None]
